FAERS Safety Report 5929200-6 (Version None)
Quarter: 2008Q4

REPORT INFORMATION
  Report Type: 
  Country: None (occurrence: None)
  Receive Date: 20081020
  Receipt Date: 20080908
  Transmission Date: 20090506
  Serious: Yes (Death)
  Sender: FDA-Public Use
  Company Number: 2007-168040-NL

PATIENT
  Sex: Female

DRUGS (2)
  1. VECURONIUM BROMIDE [Suspect]
     Route: 041
  2. PROPOFOL [Suspect]

REACTIONS (2)
  - COMPLETED SUICIDE [None]
  - DRUG TOXICITY [None]
